FAERS Safety Report 4810833-5 (Version None)
Quarter: 2005Q4

REPORT INFORMATION
  Report Type: 
  Country: None (occurrence: None)
  Receive Date: 20051024
  Receipt Date: 20051013
  Transmission Date: 20060501
  Serious: Yes (Disabling, Other)
  Sender: FDA-Public Use
  Company Number: 2005142541

PATIENT
  Age: 45 Year
  Sex: Female
  Weight: 74.8435 kg

DRUGS (10)
  1. XANAX [Suspect]
     Indication: EMOTIONAL DISORDER
     Dates: start: 19900101
  2. ZYRTEC [Suspect]
     Indication: HYPERSENSITIVITY
     Dosage: 10 MG (10 MG, AS NEEDED)
     Dates: start: 19910101
  3. MAXZIDE [Concomitant]
  4. HYDROCHLOROTHIAZIDE [Concomitant]
  5. ADVAIR DISKUS 100/50 [Concomitant]
  6. MONTELUKAST (MONTELUKAST) [Concomitant]
  7. THEOPHYLLINE [Concomitant]
  8. MAXAIR [Concomitant]
  9. CECLOR [Concomitant]
  10. POTASSIUM (POTASSIUM) [Concomitant]

REACTIONS (2)
  - ACCIDENT AT WORK [None]
  - BACK INJURY [None]
